FAERS Safety Report 6954109-9 (Version None)
Quarter: 2010Q3

REPORT INFORMATION
  Report Type: 
  Country: None (occurrence: None)
  Receive Date: 20100829
  Receipt Date: 20100706
  Transmission Date: 20110219
  Serious: No
  Sender: FDA-Public Use
  Company Number: US-ABBOTT-10P-163-0655571-00

PATIENT
  Sex: Male
  Weight: 75.364 kg

DRUGS (10)
  1. NIASPAN [Suspect]
     Indication: BLOOD CHOLESTEROL INCREASED
     Dates: start: 20100401, end: 20100704
  2. NIASPAN [Suspect]
     Dosage: AT BEDTIME
     Dates: start: 20100705
  3. PLAVIX [Concomitant]
     Indication: PRODUCT USED FOR UNKNOWN INDICATION
  4. BP MEDICATION [Concomitant]
     Indication: BLOOD PRESSURE
  5. BP MEDICATION [Concomitant]
  6. ASPIRIN [Concomitant]
     Indication: PRODUCT USED FOR UNKNOWN INDICATION
  7. METFORMIN [Concomitant]
     Indication: PRODUCT USED FOR UNKNOWN INDICATION
  8. ANTIDEPRESSANT MEDICATION [Concomitant]
     Indication: ANTIDEPRESSANT THERAPY
  9. ANTIDEPRESSANT MEDICATION [Concomitant]
  10. ANTIDEPRESSANT MEDICATION [Concomitant]

REACTIONS (3)
  - FEELING HOT [None]
  - FLUSHING [None]
  - HOT FLUSH [None]
